FAERS Safety Report 18118472 (Version 2)
Quarter: 2021Q2

REPORT INFORMATION
  Report Type: Spontaneous
  Country: None (occurrence: US)
  Receive Date: 20200806
  Receipt Date: 20210624
  Transmission Date: 20210717
  Serious: Yes (Other)
  Sender: FDA-Public Use
  Company Number: US-GLAXOSMITHKLINE-US2020151035

PATIENT
  Sex: Male

DRUGS (4)
  1. ZANTAC [Suspect]
     Active Substance: RANITIDINE HYDROCHLORIDE
     Indication: OROPHARYNGEAL DISCOMFORT
     Dosage: 150 MG, QD
     Route: 065
     Dates: start: 198509, end: 201909
  2. RANITIDINE. [Suspect]
     Active Substance: RANITIDINE
  3. ZANTAC [Suspect]
     Active Substance: RANITIDINE HYDROCHLORIDE
  4. ZANTAC [Suspect]
     Active Substance: RANITIDINE HYDROCHLORIDE
     Indication: OROPHARYNGEAL DISCOMFORT
     Dosage: 150 MG, QD
     Route: 065
     Dates: start: 198509, end: 201909

REACTIONS (1)
  - Brain neoplasm malignant [Unknown]
